FAERS Safety Report 11045313 (Version 2)
Quarter: 2015Q2

REPORT INFORMATION
  Report Type: Spontaneous
  Country: DE (occurrence: DE)
  Receive Date: 20150417
  Receipt Date: 20150428
  Transmission Date: 20150821
  Serious: Yes (Life-Threatening)
  Sender: FDA-Public Use
  Company Number: DE-TEVA-554772GER

PATIENT
  Age: 93 Year
  Sex: Female

DRUGS (19)
  1. TAVOR [Suspect]
     Active Substance: LORAZEPAM
     Dosage: .5 MILLIGRAM DAILY; AT NIGHT
     Route: 048
  2. RIVOTRIL [Suspect]
     Active Substance: CLONAZEPAM
     Route: 048
  3. ZOPICLURA [Suspect]
     Active Substance: ZOPICLONE
     Dosage: 7.5 MILLIGRAM DAILY; IN THE EVENING
     Route: 048
  4. FUROSEMIDE. [Concomitant]
     Active Substance: FUROSEMIDE
     Dosage: 40 MILLIGRAM DAILY; IN THE MORNING
     Route: 048
  5. PANTOPRAZOLE [Concomitant]
     Active Substance: PANTOPRAZOLE SODIUM
     Dosage: 40 MILLIGRAM DAILY; IN THE EVENING
     Route: 048
  6. XIPAMIDE [Concomitant]
     Active Substance: XIPAMIDE
     Dosage: 20 MILLIGRAM DAILY; AT NIGHT
     Route: 048
  7. PREDNISOLONE. [Concomitant]
     Active Substance: PREDNISOLONE
  8. MIRTAZAPINE. [Suspect]
     Active Substance: MIRTAZAPINE
     Dosage: 7.5 MILLIGRAM DAILY; AT NIGHT
     Route: 048
  9. ARTELAC-ADVANCED [Concomitant]
     Dosage: 3 DOSAGE FORMS DAILY; THREE TIMES DAILY
     Route: 047
  10. KALINOR [Concomitant]
     Active Substance: POTASSIUM CITRATE
     Route: 048
  11. RISPERIDONE. [Suspect]
     Active Substance: RISPERIDONE
     Dosage: .25 MILLIGRAM DAILY; AT NIGHT
     Route: 048
  12. BUDES EASYHALER [Concomitant]
     Dosage: .2 MILLIGRAM DAILY; IN THE MORNING AND EVENING
     Route: 055
  13. SCHWEDENTABLETTEN [Concomitant]
     Dosage: 5 DOSAGE FORMS DAILY; 1 IN THE MORNING, 2 AT NOON, 2 IN THE EVENING
     Route: 048
  14. ARTELAC SPLASH [Concomitant]
     Route: 047
  15. ALLOPURINOL. [Concomitant]
     Active Substance: ALLOPURINOL
     Dosage: 100 MILLIGRAM DAILY; IN THE MORNING
     Route: 048
  16. NEBIVOLOL [Concomitant]
     Active Substance: NEBIVOLOL
     Route: 065
  17. DIPYRONE [Concomitant]
     Active Substance: DIPYRONE
     Route: 048
  18. CLOPIDOGREL [Concomitant]
     Active Substance: CLOPIDOGREL BISULFATE
     Dosage: 75 MILLIGRAM DAILY; IN THE MORNING
     Route: 048
  19. RAMIPRIL. [Concomitant]
     Active Substance: RAMIPRIL
     Dosage: 2.5 MILLIGRAM DAILY; IN THE MORNING
     Route: 048

REACTIONS (4)
  - Confusional state [Recovered/Resolved]
  - Insomnia [Recovered/Resolved]
  - Fatigue [Recovered/Resolved]
  - Affective disorder [Recovered/Resolved]
